FAERS Safety Report 8053560-6 (Version None)
Quarter: 2012Q1

REPORT INFORMATION
  Report Type: 
  Country: None (occurrence: None)
  Receive Date: 20120118
  Receipt Date: 20120104
  Transmission Date: 20120608
  Serious: Yes (Hospitalization)
  Sender: FDA-Public Use
  Company Number: GB-MERCK-1201GBR00009

PATIENT
  Sex: Female

DRUGS (2)
  1. SITAGLIPTIN PHOSPHATE [Suspect]
     Route: 048
  2. VYTORIN [Concomitant]
     Route: 048

REACTIONS (2)
  - DYSPHAGIA [None]
  - ADVERSE EVENT [None]
